FAERS Safety Report 9781713 (Version 1)
Quarter: 2013Q4

REPORT INFORMATION
  Report Type: Spontaneous
  Country: US (occurrence: US)
  Receive Date: 20131224
  Receipt Date: 20131224
  Transmission Date: 20140711
  Serious: Yes (Other)
  Sender: FDA-Public Use
  Company Number: CHPA2013US018677

PATIENT
  Sex: Female

DRUGS (1)
  1. ALPHA-KERI MOISTURE RICH OIL [Suspect]
     Route: 061

REACTIONS (2)
  - Back injury [Not Recovered/Not Resolved]
  - Movement disorder [Not Recovered/Not Resolved]
